FAERS Safety Report 4577627-X (Version None)
Quarter: 2005Q1

REPORT INFORMATION
  Report Type: 
  Country: None (occurrence: None)
  Receive Date: 20050208
  Receipt Date: 20050126
  Transmission Date: 20050727
  Serious: Yes (Life-Threatening, Disabling)
  Sender: FDA-Public Use
  Company Number: 2005008231

PATIENT
  Age: 20 Year
  Sex: Female

DRUGS (3)
  1. UNACID INJECTION (SULBACTAM, AMPICILLIN) [Suspect]
     Indication: INTRAOPERATIVE CARE
     Dates: end: 20040109
  2. UNACID INJECTION (SULBACTAM, AMPICILLIN) [Suspect]
     Indication: PROPHYLAXIS
     Dates: end: 20040109
  3. ROCURONIUM BROMIDE (ROCURONIUM BROMIDE) [Suspect]
     Indication: MUSCLE RELAXANT THERAPY
     Dosage: INTRAVENOUS
     Route: 042
     Dates: end: 20040109

REACTIONS (15)
  - ABDOMINAL PAIN [None]
  - CONSTIPATION [None]
  - DECREASED APPETITE [None]
  - DIARRHOEA [None]
  - DISTURBANCE IN ATTENTION [None]
  - DRUG INTOLERANCE [None]
  - DRUG TOXICITY [None]
  - FEAR [None]
  - FLATULENCE [None]
  - HEADACHE [None]
  - MEDICATION ERROR [None]
  - NAUSEA [None]
  - RESPIRATORY DEPRESSION [None]
  - SKIN DISCOLOURATION [None]
  - SLEEP DISORDER [None]
